FAERS Safety Report 4824451-6 (Version None)
Quarter: 2005Q4

REPORT INFORMATION
  Report Type: 
  Country: None (occurrence: None)
  Receive Date: 20051108
  Receipt Date: 20051027
  Transmission Date: 20060501
  Serious: Yes (Other)
  Sender: FDA-Public Use
  Company Number: S05-USA-04023-01

PATIENT
  Age: 43 Year
  Sex: Female

DRUGS (10)
  1. CITALOPRAM [Suspect]
     Indication: DEPRESSION
     Dosage: 40 MG BID PO
     Route: 048
     Dates: start: 20050407, end: 20050401
  2. CITALOPRAM [Suspect]
     Indication: DEPRESSION
     Dosage: 20 MG BID PO
     Route: 048
     Dates: start: 20041201, end: 20050406
  3. CITALOPRAM [Suspect]
     Indication: DEPRESSION
     Dosage: 20 MG BID PO
     Route: 048
     Dates: start: 20050401, end: 20050101
  4. CITALOPRAM [Suspect]
     Indication: DEPRESSION
     Dosage: 40 MG QHS PO
     Route: 048
     Dates: start: 20050101
  5. WELLBUTRIN [Suspect]
     Indication: DEPRESSION
     Dosage: 75 MG QD
     Dates: start: 20050608, end: 20050614
  6. WELLBUTRIN [Suspect]
     Indication: DEPRESSION
     Dosage: 75 MG BID
     Dates: start: 20050615, end: 20050729
  7. ESTRADIOL INJ [Concomitant]
  8. ATIVAN [Concomitant]
  9. CLONAZEPAM [Concomitant]
  10. OXYCODONE [Concomitant]

REACTIONS (19)
  - ACCIDENTAL OVERDOSE [None]
  - AMNESIA [None]
  - ANXIETY [None]
  - ASTHENIA [None]
  - CONDITION AGGRAVATED [None]
  - CONFUSIONAL STATE [None]
  - CRYING [None]
  - DEPRESSION [None]
  - DISTURBANCE IN ATTENTION [None]
  - FATIGUE [None]
  - HEADACHE [None]
  - HYPERHIDROSIS [None]
  - HYPERSOMNIA [None]
  - INCORRECT DOSE ADMINISTERED [None]
  - MOTOR DYSFUNCTION [None]
  - NAUSEA [None]
  - SUICIDAL IDEATION [None]
  - THERAPY NON-RESPONDER [None]
  - TREMOR [None]
